FAERS Safety Report 6398484-5 (Version None)
Quarter: 2009Q4

REPORT INFORMATION
  Report Type: 
  Country: None (occurrence: None)
  Receive Date: 20091013
  Receipt Date: 20091006
  Transmission Date: 20100525
  Serious: Yes (Other)
  Sender: FDA-Public Use
  Company Number: B0579892A

PATIENT
  Sex: Female

DRUGS (3)
  1. SERETIDE DISKUS [Suspect]
     Indication: ASTHMA
     Dosage: 500MCG TWICE PER DAY
     Route: 055
     Dates: start: 20080901
  2. ALESION [Concomitant]
     Indication: ASTHMA
     Dosage: 20MG PER DAY
     Route: 048
     Dates: start: 20080901
  3. MICARDIS [Concomitant]
     Indication: HYPERTENSION
     Dosage: 40MG PER DAY
     Route: 048
     Dates: start: 20090401

REACTIONS (4)
  - LARYNGEAL HAEMORRHAGE [None]
  - LARYNGEAL INFLAMMATION [None]
  - OROPHARYNGEAL DISCOMFORT [None]
  - PAIN [None]
